FAERS Safety Report 9212759 (Version 4)
Quarter: 2013Q2

REPORT INFORMATION
  Report Type: Spontaneous
  Country: US (occurrence: US)
  Receive Date: 20130405
  Receipt Date: 20130626
  Transmission Date: 20140414
  Serious: Yes (Hospitalization)
  Sender: FDA-Public Use
  Company Number: US-MERCK-1304USA000627

PATIENT
  Age: 60 Year
  Sex: Female

DRUGS (4)
  1. SINGULAIR [Suspect]
     Indication: ASTHMA
     Dosage: UNK
     Route: 048
     Dates: start: 2009, end: 2013
  2. ALBUTEROL [Concomitant]
  3. ZYRTEC [Concomitant]
  4. OMNARIS [Concomitant]

REACTIONS (1)
  - Pulmonary embolism [Recovered/Resolved]
